FAERS Safety Report 9234300 (Version 2)
Quarter: 2013Q2

REPORT INFORMATION
  Report Type: Spontaneous
  Country: IT (occurrence: IT)
  Receive Date: 20130416
  Receipt Date: 20130423
  Transmission Date: 20140414
  Serious: Yes (Hospitalization)
  Sender: FDA-Public Use
  Company Number: IT-ROCHE-1215001

PATIENT
  Age: 89 Year
  Sex: Male

DRUGS (6)
  1. ROCEFIN [Suspect]
     Indication: PANCREATITIS ACUTE
     Route: 042
     Dates: start: 20120306, end: 20120312
  2. FOY [Concomitant]
  3. ESOPRAL [Concomitant]
  4. LANOXIN [Concomitant]
  5. LUCEN [Concomitant]
  6. CLEXANE [Concomitant]

REACTIONS (1)
  - Fungal infection [Unknown]
